FAERS Safety Report 7689195-4 (Version None)
Quarter: 2011Q3

REPORT INFORMATION
  Report Type: 
  Country: None (occurrence: None)
  Receive Date: 20110811
  Receipt Date: 20110802
  Transmission Date: 20111222
  Serious: Yes (Hospitalization)
  Sender: FDA-Public Use
  Company Number: ACO_25122_2011

PATIENT
  Age: 53 Year
  Sex: Female

DRUGS (8)
  1. CLONAZEPAM [Concomitant]
  2. BACLOFEN [Concomitant]
  3. WELLBUTRIN XL [Concomitant]
  4. TIZANIDINE HYDROCHLORIDE [Concomitant]
  5. ZOLOFT [Concomitant]
  6. BUSPAR [Concomitant]
  7. AMPYRA [Suspect]
     Indication: PRODUCT USED FOR UNKNOWN INDICATION
     Dosage: 10 MG, Q 12 HRS
     Dates: start: 20110131, end: 20110101
  8. BETASERON [Concomitant]

REACTIONS (9)
  - ASTHENIA [None]
  - URINARY TRACT INFECTION [None]
  - DEPRESSION [None]
  - MUSCLE SPASTICITY [None]
  - SKIN BURNING SENSATION [None]
  - PARAESTHESIA [None]
  - PRURITUS [None]
  - ERYTHEMA [None]
  - INSOMNIA [None]
